FAERS Safety Report 5505977-9 (Version None)
Quarter: 2007Q4

REPORT INFORMATION
  Report Type: 
  Country: None (occurrence: None)
  Receive Date: 20071105
  Receipt Date: 20071029
  Transmission Date: 20080405
  Serious: Yes (Other)
  Sender: FDA-Public Use
  Company Number: PHFR2007GB03196

PATIENT
  Age: 70 Year
  Sex: Male

DRUGS (4)
  1. FRUSEMIDE [Concomitant]
     Dosage: 20 MG, QD
     Route: 048
  2. LANSOPRAZOLE [Concomitant]
     Dosage: 30 MG, QD
     Route: 048
  3. OXYNORM [Concomitant]
     Dosage: 10 MG, TID
     Route: 048
  4. GLIVEC [Suspect]
     Indication: CHRONIC MYELOID LEUKAEMIA
     Dosage: 200MG / DAY
     Route: 048
     Dates: start: 20050101

REACTIONS (1)
  - GASTRIC CANCER [None]
